FAERS Safety Report 5040155-1 (Version None)
Quarter: 2006Q2

REPORT INFORMATION
  Report Type: 
  Country: None (occurrence: None)
  Receive Date: 20060630
  Receipt Date: 20060620
  Transmission Date: 20061013
  Serious: Yes (Other)
  Sender: FDA-Public Use
  Company Number: 2006GB01050

PATIENT
  Age: 53 Year
  Sex: Female

DRUGS (6)
  1. QUETIAPINE FUMARATE [Suspect]
     Indication: BIPOLAR DISORDER
     Route: 048
     Dates: end: 20060430
  2. CLOMIPRAMINE HCL [Suspect]
     Indication: BIPOLAR DISORDER
     Route: 048
     Dates: end: 20060430
  3. CLOMIPRAMINE HCL [Suspect]
     Dosage: UP-TITRATE
     Route: 048
  4. SUDAFED 12 HOUR [Suspect]
  5. ZOPICLONE [Suspect]
     Indication: INSOMNIA
     Route: 048
  6. COCAINE [Suspect]

REACTIONS (3)
  - AGITATION [None]
  - MUSCULOSKELETAL STIFFNESS [None]
  - PYREXIA [None]
